FAERS Safety Report 8387123-X (Version None)
Quarter: 2012Q1

REPORT INFORMATION
  Report Type: 
  Country: None (occurrence: None)
  Receive Date: 20120323
  Receipt Date: 20110801
  Transmission Date: 20120608
  Serious: Yes (Other)
  Sender: FDA-Public Use
  Company Number: 163-21880-11040275

PATIENT
  Age: 47 Year
  Sex: Male

DRUGS (2)
  1. REVLIMID [Suspect]
     Indication: MULTIPLE MYELOMA
     Dosage: 10 MG, GD 21/28 DAYS, PO;
     Route: 048
     Dates: start: 20110302, end: 20110405
  2. ASPIRIN [Concomitant]

REACTIONS (3)
  - FATIGUE [None]
  - PULMONARY EMBOLISM [None]
  - DIARRHOEA [None]
